FAERS Safety Report 11854672 (Version 1)
Quarter: 2015Q4

REPORT INFORMATION
  Report Type: Spontaneous
  Country: US (occurrence: US)
  Receive Date: 20151221
  Receipt Date: 20151221
  Transmission Date: 20160305
  Serious: No
  Sender: FDA-Public Use
  Company Number: US-WEST-WARD PHARMACEUTICALS CORP.-US-H14001-15-00993

PATIENT
  Sex: Female
  Weight: 51.3 kg

DRUGS (7)
  1. PREDNISONE. [Suspect]
     Active Substance: PREDNISONE
     Route: 048
     Dates: start: 2015, end: 2015
  2. PREDNISONE. [Suspect]
     Active Substance: PREDNISONE
     Route: 048
     Dates: start: 2015, end: 2015
  3. ROXANE PREDNISONE [Suspect]
     Active Substance: PREDNISONE
     Indication: ALLERGY TO CHEMICALS
     Route: 048
  4. PREDNISONE. [Suspect]
     Active Substance: PREDNISONE
     Route: 048
     Dates: start: 2015, end: 2015
  5. PREDNISONE. [Suspect]
     Active Substance: PREDNISONE
     Indication: ALLERGY TO CHEMICALS
     Route: 048
     Dates: start: 201504, end: 2015
  6. PREDNISONE. [Suspect]
     Active Substance: PREDNISONE
     Route: 048
     Dates: start: 2015, end: 2015
  7. ARMOUR THYROID [Concomitant]
     Active Substance: THYROID, PORCINE\THYROID, UNSPECIFIED
     Indication: PRODUCT USED FOR UNKNOWN INDICATION
     Route: 065

REACTIONS (4)
  - Palpitations [Recovered/Resolved]
  - Pyrexia [Recovered/Resolved]
  - Musculoskeletal stiffness [Recovered/Resolved]
  - Allergic sinusitis [Recovered/Resolved]

NARRATIVE: CASE EVENT DATE: 2015
